FAERS Safety Report 5722821-5 (Version None)
Quarter: 2008Q2

REPORT INFORMATION
  Report Type: 
  Country: None (occurrence: None)
  Receive Date: 20080429
  Receipt Date: 20080122
  Transmission Date: 20081010
  Serious: No
  Sender: FDA-Public Use
  Company Number: US-ASTRAZENECA-2008UW01533

PATIENT
  Age: 17 Year
  Sex: Female

DRUGS (5)
  1. NEXIUM [Suspect]
     Indication: EROSIVE OESOPHAGITIS
     Route: 048
     Dates: end: 20080118
  2. NEXIUM [Suspect]
     Route: 048
     Dates: start: 20080119
  3. FLOVENT [Concomitant]
     Dates: start: 20071201
  4. ALLEGRA [Concomitant]
  5. BIRTH CONTROL PILLS [Concomitant]

REACTIONS (1)
  - SKIN DISCOLOURATION [None]
